FAERS Safety Report 4282672-8 (Version None)
Quarter: 2004Q1

REPORT INFORMATION
  Report Type: 
  Country: None (occurrence: None)
  Receive Date: 20040130
  Receipt Date: 20030130
  Transmission Date: 20041129
  Serious: No
  Sender: FDA-Public Use
  Company Number: US-BRISTOL-MYERS SQUIBB COMPANY-12172524

PATIENT
  Age: 55 Year
  Sex: Female

DRUGS (7)
  1. SERZONE [Suspect]
     Indication: DEPRESSION
     Dosage: 200MG TABLETS BEGAN IN ^10/2002 OR 11/2002^;CHANGED TO THREE 100 MG TABLETS ONCE AT NIGHT
     Route: 048
     Dates: start: 20020101
  2. ZIAC [Concomitant]
  3. PREMPRO [Concomitant]
  4. ATROVENT [Concomitant]
  5. MULTI-VITAMIN [Concomitant]
     Dosage: ^ONE A DAY MULTIVITAMIN^
  6. CALCIUM [Concomitant]
  7. ASPIRIN [Concomitant]

REACTIONS (2)
  - FEELING HOT [None]
  - INSOMNIA [None]
